FAERS Safety Report 21347687 (Version 2)
Quarter: 2022Q3

REPORT INFORMATION
  Report Type: Report from Study
  Country: NL (occurrence: NL)
  Receive Date: 20220919
  Receipt Date: 20220923
  Transmission Date: 20221027
  Serious: Yes (Hospitalization)
  Sender: FDA-Public Use
  Company Number: NL-KOREA IPSEN Pharma-2022-25957

PATIENT
  Age: 26 Year
  Sex: Female

DRUGS (2)
  1. LANREOTIDE ACETATE [Suspect]
     Active Substance: LANREOTIDE ACETATE
     Indication: Neuroendocrine tumour
     Dosage: 90MG
     Route: 058
     Dates: start: 20141105, end: 2022
  2. LANREOTIDE ACETATE [Suspect]
     Active Substance: LANREOTIDE ACETATE
     Indication: Carcinoid tumour

REACTIONS (4)
  - Jaundice [Recovering/Resolving]
  - Liver function test increased [Not Recovered/Not Resolved]
  - Off label use [Unknown]
  - Off label use [Unknown]

NARRATIVE: CASE EVENT DATE: 20141105
